FAERS Safety Report 20173625 (Version 1)
Quarter: 2021Q4

REPORT INFORMATION
  Report Type: Spontaneous
  Country: JP (occurrence: JP)
  Receive Date: 20211212
  Receipt Date: 20211212
  Transmission Date: 20220304
  Serious: Yes (Hospitalization)
  Sender: FDA-Public Use
  Company Number: JP-PFIZER INC-202101716315

PATIENT
  Age: 80 Year
  Sex: Female
  Weight: 46.7 kg

DRUGS (6)
  1. ENBREL [Suspect]
     Active Substance: ETANERCEPT
     Indication: Rheumatoid arthritis
     Dosage: 50 MG, WEEKLY
     Route: 058
     Dates: start: 20190806, end: 20191001
  2. ENBREL [Suspect]
     Active Substance: ETANERCEPT
     Dosage: 50 MG, ONCE EVERY 2 WEEKS
     Route: 058
     Dates: start: 20211005
  3. ETANERCEPT [Concomitant]
     Active Substance: ETANERCEPT
     Dosage: 50 MG, WEEKLY
     Route: 058
     Dates: start: 20191008, end: 20200204
  4. ETANERCEPT [Concomitant]
     Active Substance: ETANERCEPT
     Dosage: 50 MG, ONCE EVERY 2 WEEKS
     Route: 058
     Dates: start: 20200218, end: 20210921
  5. BUCILLAMINE [Concomitant]
     Active Substance: BUCILLAMINE
     Dosage: 100 MG, 2X/DAY
     Route: 048
     Dates: start: 2012
  6. METHOTREXATE [Concomitant]
     Active Substance: METHOTREXATE
     Dosage: 4 MG, 2X/WEEK (SINCE BEFORE 2004)
     Route: 048
     Dates: start: 2004

REACTIONS (1)
  - Foot fracture [Unknown]
